FAERS Safety Report 5139523-9 (Version None)
Quarter: 2006Q4

REPORT INFORMATION
  Report Type: 
  Country: None (occurrence: None)
  Receive Date: 20061024
  Receipt Date: 20061011
  Transmission Date: 20070319
  Serious: Yes (Other)
  Sender: FDA-Public Use
  Company Number: 230042M06CAN

PATIENT
  Age: 55 Year
  Sex: Female

DRUGS (5)
  1. REBIF [Suspect]
     Dosage: 44 MCG, 3 IN 1 WEEKS, SUBCUTANEOUS
     Route: 058
     Dates: start: 19990101
  2. TOLTERODINE [Concomitant]
  3. MINOCYCLINE /00232401/ [Concomitant]
  4. ESTROGENS CONJUGATED [Concomitant]
  5. PROGESTERONE [Concomitant]

REACTIONS (3)
  - DEEP VEIN THROMBOSIS [None]
  - GAIT DISTURBANCE [None]
  - HYPOAESTHESIA [None]
